FAERS Safety Report 19884311 (Version 1)
Quarter: 2021Q3

REPORT INFORMATION
  Report Type: Spontaneous
  Country: US (occurrence: US)
  Receive Date: 20210926
  Receipt Date: 20210926
  Transmission Date: 20211014
  Serious: Yes (Other)
  Sender: FDA-Public Use
  Company Number: None

PATIENT
  Sex: Male
  Weight: 90 kg

DRUGS (4)
  1. FLECAINIDE ACETATE 100 MG TABLETS [Suspect]
     Active Substance: FLECAINIDE ACETATE
     Indication: ATRIAL FIBRILLATION
     Dosage: ?          QUANTITY:1 TABLET(S);?
     Route: 048
  2. ELIQUIS [Concomitant]
     Active Substance: APIXABAN
  3. TOPROL XL [Concomitant]
     Active Substance: METOPROLOL SUCCINATE
  4. CRESTOR [Concomitant]
     Active Substance: ROSUVASTATIN CALCIUM

REACTIONS (5)
  - Sinus node dysfunction [None]
  - Atrial fibrillation [None]
  - Insomnia [None]
  - Thinking abnormal [None]
  - Palpitations [None]

NARRATIVE: CASE EVENT DATE: 20210925
